FAERS Safety Report 15796148 (Version 3)
Quarter: 2019Q1

REPORT INFORMATION
  Report Type: Spontaneous
  Country: US (occurrence: US)
  Receive Date: 20190108
  Receipt Date: 20190313
  Transmission Date: 20190417
  Serious: Yes (Life-Threatening, Hospitalization, Other)
  Sender: FDA-Public Use
  Company Number: US-AUROBINDO-AUR-APL-2018-063840

PATIENT

DRUGS (9)
  1. SIMVASTATIN. [Concomitant]
     Active Substance: SIMVASTATIN
     Indication: DYSLIPIDAEMIA
     Dosage: UNK
     Route: 065
  2. METFORMIN TABLET [Suspect]
     Active Substance: METFORMIN HYDROCHLORIDE
     Indication: TYPE 2 DIABETES MELLITUS
     Dosage: 850 MILLIGRAM, 3 TIMES A DAY, IMMEDIATE-RELEASE
     Route: 065
  3. INSULIN GLARGINE [Concomitant]
     Active Substance: INSULIN GLARGINE
     Indication: DIABETES MELLITUS
     Dosage: UNK
     Route: 065
  4. INSULIN ASPART [Concomitant]
     Active Substance: INSULIN ASPART
     Indication: DIABETES MELLITUS
     Dosage: UNK
     Route: 065
  5. LIRAGLUTIDE [Suspect]
     Active Substance: LIRAGLUTIDE
     Indication: TYPE 2 DIABETES MELLITUS
     Dosage: 0.6 MILLIGRAM, ONCE A DAY/WEEK
     Route: 058
  6. LEVOTHYROXINE. [Concomitant]
     Active Substance: LEVOTHYROXINE
     Indication: HYPOTHYROIDISM
     Dosage: UNK
     Route: 065
  7. LISINOPRIL. [Concomitant]
     Active Substance: LISINOPRIL
     Indication: HYPERTENSION
     Dosage: UNK
     Route: 065
  8. LIRAGLUTIDE [Suspect]
     Active Substance: LIRAGLUTIDE
     Dosage: 1.2 MILLIGRAM, ONCE A DAY/WEEK
     Route: 058
  9. LIRAGLUTIDE [Suspect]
     Active Substance: LIRAGLUTIDE
     Dosage: 1.8 MILLIGRAM, ONCE A DAY/WEEK
     Route: 058

REACTIONS (13)
  - Pulseless electrical activity [Recovered/Resolved]
  - Pyrexia [Unknown]
  - Cardiac arrest [Recovered/Resolved]
  - Blood pressure decreased [Unknown]
  - Tachypnoea [Unknown]
  - Drug interaction [Recovered/Resolved]
  - Tachycardia [Unknown]
  - Abdominal pain [Unknown]
  - Nausea [Unknown]
  - Sinus tachycardia [Recovered/Resolved]
  - Renal impairment [Recovering/Resolving]
  - Lactic acidosis [Recovered/Resolved]
  - Vomiting [Unknown]
